FAERS Safety Report 22016538 (Version 1)
Quarter: 2023Q1

REPORT INFORMATION
  Report Type: Report from Study
  Country: US (occurrence: US)
  Receive Date: 20230221
  Receipt Date: 20230221
  Transmission Date: 20230418
  Serious: Yes (Other)
  Sender: FDA-Public Use
  Company Number: US-OTSUKA-2023_004345

PATIENT
  Sex: Male

DRUGS (1)
  1. CEDAZURIDINE\DECITABINE [Suspect]
     Active Substance: CEDAZURIDINE\DECITABINE
     Indication: Myelodysplastic syndrome
     Dosage: 1 DF (35 MG DECITABINE AND 100 MG CEDAZURIDINE), QD
     Route: 048
     Dates: start: 202301

REACTIONS (6)
  - Dysstasia [Unknown]
  - Eating disorder [Unknown]
  - Pyrexia [Unknown]
  - Infection [Unknown]
  - White blood cell count decreased [Unknown]
  - Malaise [Unknown]
